FAERS Safety Report 24869359 (Version 1)
Quarter: 2025Q1

REPORT INFORMATION
  Report Type: Spontaneous
  Country: CN (occurrence: CN)
  Receive Date: 20250121
  Receipt Date: 20250121
  Transmission Date: 20250409
  Serious: Yes (Life-Threatening, Other)
  Sender: GLAXOSMITHKLINE
  Company Number: CN-GSK-CN2025APC006561

PATIENT

DRUGS (2)
  1. FLUTICASONE PROPIONATE [Suspect]
     Active Substance: FLUTICASONE PROPIONATE
     Indication: Pneumonia
     Dosage: 4 ML, BID
     Route: 055
     Dates: start: 20250103, end: 20250103
  2. CEFOPERAZONE SODIUM\SULBACTAM SODIUM [Suspect]
     Active Substance: CEFOPERAZONE SODIUM\SULBACTAM SODIUM
     Indication: Pneumonia
     Dosage: 2 G, TID
     Route: 042
     Dates: start: 20250103, end: 20250103

REACTIONS (8)
  - Angioedema [Recovered/Resolved]
  - Hypersensitivity [Recovered/Resolved]
  - Pruritus [Recovered/Resolved]
  - Dysphonia [Recovered/Resolved]
  - Papule [Recovered/Resolved]
  - Eyelid oedema [Recovered/Resolved]
  - Chest discomfort [Recovered/Resolved]
  - Product use in unapproved indication [Unknown]

NARRATIVE: CASE EVENT DATE: 20250103
